FAERS Safety Report 25904736 (Version 1)
Quarter: 2025Q4

REPORT INFORMATION
  Report Type: Spontaneous
  Country: EU (occurrence: EU)
  Receive Date: 20251010
  Receipt Date: 20251010
  Transmission Date: 20260119
  Serious: Yes (Other)
  Sender: SANDOZ
  Company Number: EU-SANDOZ-SDZ2025PL073915

PATIENT
  Age: 79 Year
  Sex: Female

DRUGS (8)
  1. APIXABAN [Suspect]
     Active Substance: APIXABAN
     Indication: Chronic myeloid leukaemia
     Dosage: 5 MG 2X 2 TABLETS FOR 7 DAYS, FOLLOWED BY 2X 1 TABLET
     Route: 065
  2. ASCIMINIB [Suspect]
     Active Substance: ASCIMINIB
     Indication: Chronic myeloid leukaemia
     Dosage: 40 MG 2 ? 1 TABLET
     Route: 065
     Dates: start: 202411
  3. BUDESONIDE [Suspect]
     Active Substance: BUDESONIDE
     Indication: Chronic myeloid leukaemia
     Dosage: 3 MG 1X 2 TABLETS
     Route: 065
  4. DONEPEZIL [Suspect]
     Active Substance: DONEPEZIL
     Indication: Chronic myeloid leukaemia
     Dosage: 5 MG IN EVENING
     Route: 065
  5. ESCITALOPRAM [Suspect]
     Active Substance: ESCITALOPRAM OXALATE
     Indication: Chronic myeloid leukaemia
     Dosage: 10 MG 1X 1
     Route: 065
  6. METOPROLOL [Suspect]
     Active Substance: METOPROLOL
     Indication: Chronic myeloid leukaemia
     Dosage: 25 MG 2X
     Route: 065
  7. MESALAMINE [Suspect]
     Active Substance: MESALAMINE
     Indication: Chronic myeloid leukaemia
     Dosage: 500 MG  2X 2
     Route: 065
  8. PERINDOPRIL [Suspect]
     Active Substance: PERINDOPRIL
     Indication: Chronic myeloid leukaemia
     Dosage: 5 MG
     Route: 065

REACTIONS (4)
  - Dementia [Unknown]
  - Pulmonary embolism [Unknown]
  - Pleural effusion [Unknown]
  - Depressive symptom [Unknown]
